FAERS Safety Report 8074713-7 (Version None)
Quarter: 2012Q1

REPORT INFORMATION
  Report Type: 
  Country: None (occurrence: None)
  Receive Date: 20120126
  Receipt Date: 20120119
  Transmission Date: 20120608
  Serious: Yes (Hospitalization)
  Sender: FDA-Public Use
  Company Number: DE-ROCHE-1020652

PATIENT
  Sex: Male
  Weight: 70 kg

DRUGS (11)
  1. KEPPRA [Concomitant]
  2. VIMPAT [Concomitant]
  3. MIRTAZAPINE [Concomitant]
     Dosage: 15MG AT NOON AND 30MG IN EVENING
  4. ZELBORAF [Suspect]
     Route: 048
  5. TRAMADOL HYDROCHLORIDE [Concomitant]
  6. ZELBORAF [Suspect]
     Indication: METASTATIC MALIGNANT MELANOMA
     Route: 048
     Dates: start: 20111130
  7. DIPYRONE TAB [Concomitant]
  8. PANTOPRAZOLE [Concomitant]
  9. DEXAMETHASONE [Concomitant]
  10. LORAZEPAM [Concomitant]
     Dosage: 0.5MG IN MORNING AND 1MG IN EVENING
  11. CALCIUM CITRATE [Concomitant]

REACTIONS (6)
  - ALANINE AMINOTRANSFERASE INCREASED [None]
  - BLOOD LACTATE DEHYDROGENASE INCREASED [None]
  - LYMPHOCYTE COUNT DECREASED [None]
  - WHITE BLOOD CELL COUNT INCREASED [None]
  - GAMMA-GLUTAMYLTRANSFERASE INCREASED [None]
  - LIPASE INCREASED [None]
